FAERS Safety Report 8052982-7 (Version None)
Quarter: 2011Q4

REPORT INFORMATION
  Report Type: 
  Country: None (occurrence: None)
  Receive Date: 20111212
  Receipt Date: 20111108
  Transmission Date: 20120403
  Serious: Yes (Other)
  Sender: FDA-Public Use
  Company Number: PHHY2010US69025

PATIENT
  Age: 40 Year
  Sex: Female

DRUGS (3)
  1. LANTUS [Concomitant]
  2. EXTAVIA [Suspect]
     Indication: MULTIPLE SCLEROSIS
     Dosage: 0.25 MG, SUBCUTANEOUS, 0.652 MG, QOD, SUBCUTANEOUS
     Route: 058
     Dates: end: 20110101
  3. INSULIN [Concomitant]

REACTIONS (9)
  - HEADACHE [None]
  - BURNING SENSATION [None]
  - MULTIPLE SCLEROSIS RELAPSE [None]
  - NAUSEA [None]
  - MALAISE [None]
  - CONTUSION [None]
  - INSOMNIA [None]
  - MUSCLE SPASMS [None]
  - FATIGUE [None]
